FAERS Safety Report 9296699 (Version 2)
Quarter: 2013Q3

REPORT INFORMATION
  Report Type: Spontaneous
  Country: US (occurrence: US)
  Receive Date: 20130517
  Receipt Date: 20130717
  Transmission Date: 20140515
  Serious: Yes (Other)
  Sender: FDA-Public Use
  Company Number: US-ASTRAZENECA-2013SE32155

PATIENT
  Age: 77 Year
  Sex: Male
  Weight: 68 kg

DRUGS (8)
  1. SYMBICORT [Suspect]
     Indication: CHRONIC OBSTRUCTIVE PULMONARY DISEASE
     Dosage: 160/4.5 MCG, 2 PUFFS TWO TIMES A DAY
     Route: 055
     Dates: start: 201303
  2. SYMBICORT [Suspect]
     Indication: ASTHMA
     Dosage: 160/4.5 MCG, 2 PUFFS TWO TIMES A DAY
     Route: 055
     Dates: start: 201303
  3. SYMBICORT [Suspect]
     Indication: EMPHYSEMA
     Dosage: 160/4.5 MCG, 2 PUFFS TWO TIMES A DAY
     Route: 055
     Dates: start: 201303
  4. SYMBICORT [Suspect]
     Indication: CHRONIC OBSTRUCTIVE PULMONARY DISEASE
     Dosage: 160/4.5 MCG, 2 PUFFS DAILY
     Route: 055
     Dates: start: 201303
  5. SYMBICORT [Suspect]
     Indication: ASTHMA
     Dosage: 160/4.5 MCG, 2 PUFFS DAILY
     Route: 055
     Dates: start: 201303
  6. SYMBICORT [Suspect]
     Indication: EMPHYSEMA
     Dosage: 160/4.5 MCG, 2 PUFFS DAILY
     Route: 055
     Dates: start: 201303
  7. PRO AIR [Concomitant]
  8. IBUPROFEN [Concomitant]

REACTIONS (3)
  - Blindness unilateral [Unknown]
  - Visual impairment [Unknown]
  - Intentional drug misuse [Unknown]
